FAERS Safety Report 4511406-4 (Version None)
Quarter: 2004Q4

REPORT INFORMATION
  Report Type: 
  Country: None (occurrence: None)
  Receive Date: 20041129
  Receipt Date: 20040714
  Transmission Date: 20050328
  Serious: No
  Sender: FDA-Public Use
  Company Number: US-BRISTOL-MYERS SQUIBB COMPANY-12640041

PATIENT
  Age: 17 Year
  Sex: Female

DRUGS (2)
  1. ABILIFY [Suspect]
     Indication: PSYCHOTIC DISORDER
     Dosage: OPTION OF AN ADDITIONAL DOSE OF 10 MG/DAY
     Route: 048
     Dates: start: 20040203
  2. PROZAC [Concomitant]

REACTIONS (1)
  - PREGNANCY [None]
